FAERS Safety Report 23759001 (Version 1)
Quarter: 2024Q2

REPORT INFORMATION
  Report Type: Spontaneous
  Country: US (occurrence: None)
  Receive Date: 20240418
  Receipt Date: 20240418
  Transmission Date: 20240716
  Serious: No
  Sender: FDA-Public Use
  Company Number: US-ROCHE-3327999

PATIENT
  Sex: Female
  Weight: 56.296 kg

DRUGS (6)
  1. KADCYLA [Suspect]
     Active Substance: ADO-TRASTUZUMAB EMTANSINE
     Indication: HER2 positive breast cancer
     Dosage: ADMINISTERED TO RIGHT UPPER CHEST PORT
     Route: 065
     Dates: start: 202210
  2. KADCYLA [Suspect]
     Active Substance: ADO-TRASTUZUMAB EMTANSINE
     Indication: Breast cancer female
  3. POTASSIUM [Suspect]
     Active Substance: POTASSIUM
     Indication: Blood potassium decreased
     Route: 065
  4. CORTISONE [Concomitant]
     Active Substance: CORTISONE
     Indication: Arthralgia
     Dosage: STEROID INJECTION TO LEFT HIP
  5. TRAZODONE [Concomitant]
     Active Substance: TRAZODONE HYDROCHLORIDE
  6. MAGNESIUM [Concomitant]
     Active Substance: MAGNESIUM
     Indication: Muscle spasms

REACTIONS (6)
  - Brain fog [Not Recovered/Not Resolved]
  - Paraesthesia [Not Recovered/Not Resolved]
  - Peripheral swelling [Not Recovered/Not Resolved]
  - Hyperaesthesia [Not Recovered/Not Resolved]
  - Musculoskeletal stiffness [Not Recovered/Not Resolved]
  - Arthralgia [Not Recovered/Not Resolved]

NARRATIVE: CASE EVENT DATE: 20230201
